FAERS Safety Report 7483476-5 (Version None)
Quarter: 2011Q2

REPORT INFORMATION
  Report Type: 
  Country: None (occurrence: None)
  Receive Date: 20110517
  Receipt Date: 20110504
  Transmission Date: 20111010
  Serious: Yes (Other)
  Sender: FDA-Public Use
  Company Number: IN-RANBAXY-2011RR-44319

PATIENT
  Age: 14 Year
  Sex: Male

DRUGS (5)
  1. AMPICILLIN SODIUM/SULBACTAM SODIUM [Suspect]
     Indication: URINARY TRACT INFECTION
  2. PREDNISOLONE [Concomitant]
     Indication: IMMUNOSUPPRESSION
  3. MYCOPHENOLATE MOFETIL [Suspect]
     Dosage: 2000 MG, UNK
  4. TACROLIMUS [Concomitant]
     Indication: IMMUNOSUPPRESSION
  5. MYCOPHENOLATE MOFETIL [Suspect]
     Indication: IMMUNOSUPPRESSION
     Dosage: 500 MG, TID

REACTIONS (2)
  - DRUG INTERACTION [None]
  - DRUG LEVEL DECREASED [None]
